FAERS Safety Report 5288811-4 (Version None)
Quarter: 2007Q2

REPORT INFORMATION
  Report Type: 
  Country: None (occurrence: None)
  Receive Date: 20070405
  Receipt Date: 20070330
  Transmission Date: 20071010
  Serious: Yes (Death)
  Sender: FDA-Public Use
  Company Number: CA-ABBOTT-07P-028-0363683-00

PATIENT
  Age: 75 Year
  Sex: Male

DRUGS (2)
  1. DILAUDID [Suspect]
     Indication: ANALGESIC EFFECT
     Route: 058
  2. DILAUDID [Suspect]
     Indication: PALLIATIVE CARE

REACTIONS (3)
  - AGITATION [None]
  - NEOPLASM MALIGNANT [None]
  - RESTLESSNESS [None]
